FAERS Safety Report 23741075 (Version 1)
Quarter: 2024Q2

REPORT INFORMATION
  Report Type: Other
  Country: US (occurrence: US)
  Receive Date: 20240415
  Receipt Date: 20240415
  Transmission Date: 20240715
  Serious: Yes (Hospitalization)
  Sender: FDA-Public Use
  Company Number: US-ALVOGEN-2024093336

PATIENT
  Age: 24 Year
  Sex: Male

DRUGS (3)
  1. TRAZODONE [Suspect]
     Active Substance: TRAZODONE HYDROCHLORIDE
     Indication: Insomnia
     Dosage: NIGHTLY, ON POST-OPERATIVE DAY (POD) 2
  2. LORAZEPAM [Suspect]
     Active Substance: LORAZEPAM
     Indication: Insomnia
     Dosage: ON POST-OPERATIVE DAY 1
  3. GABAPENTIN [Suspect]
     Active Substance: GABAPENTIN
     Indication: Insomnia
     Dosage: ON POST-OPERATIVE DAY 1

REACTIONS (5)
  - Disturbance in sexual arousal [Recovered/Resolved]
  - Male orgasmic disorder [Recovered/Resolved]
  - Hallucination, visual [Recovered/Resolved]
  - Drug intolerance [Unknown]
  - Off label use [Unknown]
